FAERS Safety Report 17493329 (Version 1)
Quarter: 2020Q1

REPORT INFORMATION
  Report Type: Spontaneous
  Country: US (occurrence: US)
  Receive Date: 20200220
  Receipt Date: 20200220
  Transmission Date: 20200409
  Serious: No
  Sender: FDA-Public Use
  Company Number: None

PATIENT
  Age: 54 Year
  Sex: Male
  Weight: 76.2 kg

DRUGS (1)
  1. VARENICLINE (VARENICLINE 1MG TAB) [Suspect]
     Active Substance: VARENICLINE
     Indication: SMOKING CESSATION THERAPY
     Route: 048
     Dates: start: 20190903, end: 20191105

REACTIONS (2)
  - Abnormal dreams [None]
  - Hallucination [None]

NARRATIVE: CASE EVENT DATE: 20191003
